FAERS Safety Report 7011834-1 (Version None)
Quarter: 2010Q3

REPORT INFORMATION
  Report Type: 
  Country: None (occurrence: None)
  Receive Date: 20100923
  Receipt Date: 20090831
  Transmission Date: 20110219
  Serious: Yes (Other)
  Sender: FDA-Public Use
  Company Number: US-WYE-H10773309

PATIENT
  Sex: Female
  Weight: 45.4 kg

DRUGS (11)
  1. PREMARIN [Suspect]
     Indication: HORMONE REPLACEMENT THERAPY
     Route: 048
     Dates: start: 19750101, end: 20090830
  2. DARVOCET-N 100 [Concomitant]
     Indication: PAIN
     Dosage: UNKNOWN
     Route: 065
  3. DARVOCET-N 100 [Concomitant]
     Indication: HEADACHE
  4. LIDODERM [Concomitant]
     Dosage: UNKNOWN
     Route: 065
  5. PONARIS [Concomitant]
     Indication: EPISTAXIS
     Dosage: UNKNOWN
     Route: 065
  6. RESTASIS [Concomitant]
     Indication: DRY EYE
     Dosage: UNKNOWN
     Route: 065
  7. PHENERGAN [Concomitant]
     Indication: NAUSEA
     Dosage: 12.5MG
     Route: 065
  8. RECLAST [Concomitant]
     Indication: BONE DISORDER
     Dosage: ONCE YEARLY
     Route: 065
  9. VITAMINS [Concomitant]
     Dosage: UNKNOWN
     Route: 065
  10. ENULOSE [Concomitant]
     Indication: CONSTIPATION
     Dosage: UNKNOWN
     Route: 065
  11. FLECTOR [Concomitant]
     Dosage: UNKNOWN
     Route: 065

REACTIONS (1)
  - BREAST CANCER IN SITU [None]
